FAERS Safety Report 9213614 (Version 2)
Quarter: 2013Q4

REPORT INFORMATION
  Report Type: Spontaneous
  Country: US (occurrence: US)
  Receive Date: 20130405
  Receipt Date: 20131210
  Transmission Date: 20140711
  Serious: Yes (Other)
  Sender: FDA-Public Use
  Company Number: US-BAYER-2013-040193

PATIENT
  Age: 27 Year
  Sex: Female

DRUGS (7)
  1. YAZ [Suspect]
     Dosage: UNK
     Dates: start: 2004
  2. YASMIN [Suspect]
     Dosage: UNK
     Dates: start: 2004
  3. EFFEXOR XR [Concomitant]
     Dosage: 150 MG, UNK
     Dates: start: 20090706, end: 20090731
  4. EFFEXOR XR [Concomitant]
     Dosage: 75 MG, DAILY
     Dates: start: 20090828
  5. AMOXICILLIN [Concomitant]
     Dosage: 500 MG, UNK
     Dates: start: 20090731
  6. ZYRTEC [Concomitant]
     Dosage: 10 MG, UNK
     Dates: start: 20090928
  7. FLONASE [Concomitant]
     Dosage: UNK UNK, PRN
     Dates: start: 20090828

REACTIONS (6)
  - Gallbladder injury [None]
  - Cholecystitis chronic [None]
  - Pain [None]
  - Fear [None]
  - Pain [None]
  - Injury [None]
